FAERS Safety Report 21895317 (Version 1)
Quarter: 2023Q1

REPORT INFORMATION
  Report Type: Spontaneous
  Country: US (occurrence: US)
  Receive Date: 20230123
  Receipt Date: 20230123
  Transmission Date: 20230417
  Serious: No
  Sender: FDA-Public Use
  Company Number: US-GSK-US2023AMR006349

PATIENT
  Sex: Female

DRUGS (1)
  1. ALBUTEROL SULFATE [Suspect]
     Active Substance: ALBUTEROL SULFATE
     Indication: Product used for unknown indication
     Dosage: UNK 90 MCG, 18G/200

REACTIONS (8)
  - Chest discomfort [Unknown]
  - Fear [Unknown]
  - Nasal congestion [Unknown]
  - Sneezing [Unknown]
  - Head discomfort [Unknown]
  - Wrong technique in device usage process [Unknown]
  - Intentional underdose [Unknown]
  - Drug ineffective [Unknown]
